FAERS Safety Report 14101277 (Version 1)
Quarter: 2017Q4

REPORT INFORMATION
  Report Type: Spontaneous
  Country: US (occurrence: US)
  Receive Date: 20171018
  Receipt Date: 20171018
  Transmission Date: 20180321
  Serious: Yes (Death, Hospitalization, Other)
  Sender: FDA-Public Use
  Company Number: US-CPL-000055

PATIENT
  Sex: Male

DRUGS (1)
  1. ACICLOVIR [Suspect]
     Active Substance: ACYCLOVIR
     Indication: HERPES SIMPLEX
     Route: 064

REACTIONS (8)
  - Meningoencephalitis herpetic [Fatal]
  - Herpes simplex [None]
  - Cerebral ventricle dilatation [Fatal]
  - Amniotic cavity infection [Unknown]
  - Maternal drugs affecting foetus [None]
  - Hydrocephalus [Unknown]
  - Foetal exposure during pregnancy [Unknown]
  - Seizure [Unknown]
